FAERS Safety Report 21601296 (Version 2)
Quarter: 2022Q4

REPORT INFORMATION
  Report Type: Report from Study
  Country: KR (occurrence: KR)
  Receive Date: 20221116
  Receipt Date: 20221125
  Transmission Date: 20230112
  Serious: Yes (Death, Hospitalization)
  Sender: FDA-Public Use
  Company Number: KR-BEIGENE-BGN-2022-010747

PATIENT
  Age: 58 Year
  Sex: Male

DRUGS (2)
  1. PEMETREXED [Suspect]
     Active Substance: PEMETREXED
     Indication: B-cell lymphoma
     Dosage: 900 MG
     Route: 042
     Dates: start: 20220908, end: 20221020
  2. TISLELIZUMAB [Suspect]
     Active Substance: TISLELIZUMAB
     Indication: B-cell lymphoma
     Dosage: 200 MG
     Route: 042
     Dates: start: 20220908, end: 20221020

REACTIONS (1)
  - Febrile neutropenia [Fatal]

NARRATIVE: CASE EVENT DATE: 20221029
